FAERS Safety Report 25591492 (Version 1)
Quarter: 2025Q3

REPORT INFORMATION
  Report Type: Spontaneous
  Country: US (occurrence: US)
  Receive Date: 20250722
  Receipt Date: 20250722
  Transmission Date: 20251021
  Serious: Yes (Hospitalization, Other)
  Sender: AMNEAL
  Company Number: US-AMNEAL PHARMACEUTICALS-2025-AMRX-02661

PATIENT
  Age: 39 Year
  Sex: Female

DRUGS (3)
  1. CARVEDILOL PHOSPHATE [Suspect]
     Active Substance: CARVEDILOL PHOSPHATE
     Indication: Product used for unknown indication
     Route: 065
  2. ISOSORBIDE [Suspect]
     Active Substance: ISOSORBIDE
     Indication: Product used for unknown indication
     Route: 065
  3. HYDRALAZINE [Concomitant]
     Active Substance: HYDRALAZINE HYDROCHLORIDE
     Indication: Product used for unknown indication
     Route: 065

REACTIONS (5)
  - Acidosis [Recovered/Resolved]
  - Cardiac failure [Recovering/Resolving]
  - Shock [Recovered/Resolved]
  - Suicide attempt [Unknown]
  - Intentional overdose [Unknown]
